FAERS Safety Report 4628234-1 (Version None)
Quarter: 2005Q2

REPORT INFORMATION
  Report Type: 
  Country: None (occurrence: None)
  Receive Date: 20050401
  Receipt Date: 20050323
  Transmission Date: 20051028
  Serious: Yes (Other)
  Sender: FDA-Public Use
  Company Number: 2005049071

PATIENT
  Age: 69 Year
  Sex: Female
  Weight: 77.1115 kg

DRUGS (4)
  1. NEURONTIN (GABAPENTIN) [Suspect]
     Indication: NEUROPATHY PERIPHERAL
     Dosage: (100 MG, UP TO THREE TIMES A DAY)
  2. LOTREL [Concomitant]
  3. ATENOLOL [Concomitant]
  4. CELECOXIB (CELECOXIB) [Concomitant]

REACTIONS (2)
  - DRUG EFFECT DECREASED [None]
  - IMPAIRED HEALING [None]
